FAERS Safety Report 15500479 (Version 1)
Quarter: 2018Q4

REPORT INFORMATION
  Report Type: Spontaneous
  Country: US (occurrence: US)
  Receive Date: 20181015
  Receipt Date: 20181015
  Transmission Date: 20190205
  Serious: Yes (Other)
  Sender: FDA-Public Use
  Company Number: US-PFIZER INC-2018411202

PATIENT
  Age: 68 Year
  Sex: Male

DRUGS (1)
  1. TESTOSTERONE CIPIONATE [Suspect]
     Active Substance: TESTOSTERONE
     Indication: HAEMOCHROMATOSIS
     Dosage: UNK

REACTIONS (2)
  - Cognitive disorder [Unknown]
  - Polycythaemia [Unknown]
